FAERS Safety Report 5273665-2 (Version None)
Quarter: 2007Q1

REPORT INFORMATION
  Report Type: 
  Country: None (occurrence: None)
  Receive Date: 20061219
  Receipt Date: 20060928
  Transmission Date: 20070707
  Serious: Yes (Hospitalization)
  Sender: FDA-Public Use
  Company Number: US-JNJFOC-20061000739

PATIENT
  Age: 31 Year
  Sex: Female

DRUGS (4)
  1. ORTHO EVRA [Suspect]
     Indication: CONTRACEPTION
  2. PHENTERMINE [Concomitant]
  3. PHENDIMETRAZINE (PHENDIMETRAZINE) [Concomitant]
  4. ALBUTEROL [Concomitant]

REACTIONS (1)
  - PULMONARY EMBOLISM [None]
